FAERS Safety Report 16114659 (Version 2)
Quarter: 2019Q2

REPORT INFORMATION
  Report Type: Spontaneous
  Country: US (occurrence: US)
  Receive Date: 20190325
  Receipt Date: 20190413
  Transmission Date: 20190711
  Serious: No
  Sender: FDA-Public Use
  Company Number: US-JNJFOC-20190310503

PATIENT
  Sex: Male

DRUGS (2)
  1. STELARA [Suspect]
     Active Substance: USTEKINUMAB
     Indication: CROHN^S DISEASE
     Route: 058
     Dates: start: 20180209
  2. AZATHIOPRINE. [Concomitant]
     Active Substance: AZATHIOPRINE
     Route: 065

REACTIONS (8)
  - Off label use [Unknown]
  - Decreased appetite [Unknown]
  - Pharyngeal swelling [Unknown]
  - Diarrhoea [Unknown]
  - Depression [Unknown]
  - Dyspnoea [Unknown]
  - Product dose omission [Unknown]
  - Vision blurred [Unknown]
